FAERS Safety Report 5739223-8 (Version None)
Quarter: 2008Q2

REPORT INFORMATION
  Report Type: 
  Country: None (occurrence: None)
  Receive Date: 20080515
  Receipt Date: 20080506
  Transmission Date: 20081010
  Serious: Yes (Other)
  Sender: FDA-Public Use
  Company Number: PHMT2008CA00533

PATIENT
  Age: 60 Year
  Sex: Female

DRUGS (2)
  1. GLEEVEC [Suspect]
     Indication: CHRONIC MYELOID LEUKAEMIA
     Dosage: 400 MG, QD
     Route: 048
     Dates: start: 20030701, end: 20070118
  2. GLEEVEC [Suspect]
     Dates: start: 20070326

REACTIONS (4)
  - HEPATIC ENZYME INCREASED [None]
  - HEPATITIS C [None]
  - OVARIAN CANCER [None]
  - SURGERY [None]
